FAERS Safety Report 8451375 (Version 4)
Quarter: 2014Q2

REPORT INFORMATION
  Report Type: Spontaneous
  Country: US (occurrence: None)
  Receive Date: 20120216
  Receipt Date: 20140604
  Transmission Date: 20141212
  Serious: Yes (Hospitalization)
  Sender: FDA-Public Use
  Company Number: 20111028CINRY2405

PATIENT
  Age: 28 Year
  Sex: Female

DRUGS (2)
  1. CINRYZE [Suspect]
     Indication: HEREDITARY ANGIOEDEMA
     Dosage: 500 UNIT, INJECTION FOR INFUSION
     Route: 042
  2. CINRYZE [Suspect]
     Indication: PROPHYLAXIS
     Dosage: 500 UNIT, INJECTION FOR INFUSION
     Route: 042

REACTIONS (6)
  - Hereditary angioedema [None]
  - Drug dose omission [None]
  - Device issue [None]
  - Medical device complication [None]
  - Device dislocation [None]
  - Injection site pain [None]
